FAERS Safety Report 6130700-7 (Version None)
Quarter: 2009Q1

REPORT INFORMATION
  Report Type: 
  Country: None (occurrence: None)
  Receive Date: 20090325
  Receipt Date: 20090313
  Transmission Date: 20090719
  Serious: Yes (Life-Threatening, Hospitalization)
  Sender: FDA-Public Use
  Company Number: DK-JNJFOC-20090303724

PATIENT
  Sex: Female
  Weight: 55 kg

DRUGS (6)
  1. REMICADE [Suspect]
     Indication: CROHN'S DISEASE
     Dosage: TOTAL OF 12 INFUSIONS RECEIVED
     Route: 042
  2. CALCIUM WITH VITAMIN D [Concomitant]
  3. PREDNISOLONE [Concomitant]
  4. PINEX [Concomitant]
  5. PANTOPRAZOLE SODIUM [Concomitant]
  6. VIBEDEN [Concomitant]
     Route: 030

REACTIONS (1)
  - T-CELL LYMPHOMA [None]
